FAERS Safety Report 7427931-2 (Version None)
Quarter: 2011Q2

REPORT INFORMATION
  Report Type: 
  Country: None (occurrence: None)
  Receive Date: 20110421
  Receipt Date: 20110328
  Transmission Date: 20111010
  Serious: Yes (Hospitalization, Other)
  Sender: FDA-Public Use
  Company Number: US-BAYER-201010644NA

PATIENT
  Age: 42 Year
  Sex: Female
  Weight: 129.55 kg

DRUGS (4)
  1. YAZ [Suspect]
     Indication: MENSTRUAL CYCLE MANAGEMENT
  2. SERTRALINE [Concomitant]
  3. YAZ [Suspect]
     Indication: CONTRACEPTION
     Route: 048
     Dates: start: 20090519, end: 20091101
  4. PROTONIX [Concomitant]
     Indication: GASTROOESOPHAGEAL REFLUX DISEASE

REACTIONS (6)
  - RENAL CELL CARCINOMA [None]
  - CHOLELITHIASIS [None]
  - HEPATOMEGALY [None]
  - HEPATIC STEATOSIS [None]
  - PAIN [None]
  - CHOLECYSTITIS ACUTE [None]
